FAERS Safety Report 7637650-5 (Version None)
Quarter: 2011Q3

REPORT INFORMATION
  Report Type: 
  Country: None (occurrence: None)
  Receive Date: 20110726
  Receipt Date: 20110721
  Transmission Date: 20111222
  Serious: Yes (Life-Threatening, Hospitalization)
  Sender: FDA-Public Use
  Company Number: US-MERCK-1106USA03129

PATIENT
  Sex: Male

DRUGS (2)
  1. ADVAIR DISKUS 100/50 [Concomitant]
     Route: 065
  2. SINGULAIR [Suspect]
     Indication: ASTHMA
     Route: 048
     Dates: end: 20110611

REACTIONS (6)
  - GLOMERULONEPHRITIS MEMBRANOPROLIFERATIVE [None]
  - NEPHROTIC SYNDROME [None]
  - BLOOD PRESSURE INCREASED [None]
  - EOSINOPHIL COUNT INCREASED [None]
  - RENAL DISORDER [None]
  - NEPHRITIS [None]
